FAERS Safety Report 19074158 (Version 1)
Quarter: 2021Q1

REPORT INFORMATION
  Report Type: Report from Study
  Country: DE (occurrence: DE)
  Receive Date: 20210330
  Receipt Date: 20210330
  Transmission Date: 20210420
  Serious: Yes (Death, Life-Threatening, Hospitalization, Other)
  Sender: FDA-Public Use
  Company Number: DE-BRISTOL-MYERS SQUIBB COMPANY-BMS-2021-026027

PATIENT
  Age: 77 Year
  Sex: Male
  Weight: 77 kg

DRUGS (1)
  1. NIVOLUMAB [Suspect]
     Active Substance: NIVOLUMAB
     Indication: NON-SMALL CELL LUNG CANCER
     Dosage: 240 MILLIGRAM
     Route: 065
     Dates: start: 20210204, end: 20210225

REACTIONS (6)
  - Shock haemorrhagic [Fatal]
  - Cardiac arrest [Fatal]
  - Brain injury [Fatal]
  - Fall [Fatal]
  - COVID-19 [Unknown]
  - Rib fracture [Unknown]

NARRATIVE: CASE EVENT DATE: 20210306
